FAERS Safety Report 6899132-8 (Version None)
Quarter: 2010Q3

REPORT INFORMATION
  Report Type: 
  Country: None (occurrence: None)
  Receive Date: 20100802
  Receipt Date: 20080114
  Transmission Date: 20110219
  Serious: Yes (Other)
  Sender: FDA-Public Use
  Company Number: US-PFIZER INC-2008004517

PATIENT
  Sex: Female

DRUGS (1)
  1. LYRICA [Suspect]
     Indication: FIBROMYALGIA

REACTIONS (6)
  - ABNORMAL DREAMS [None]
  - ANKLE FRACTURE [None]
  - DRUG DEPENDENCE [None]
  - SOMNOLENCE [None]
  - TREMOR [None]
  - YAWNING [None]
